FAERS Safety Report 9915495 (Version 3)
Quarter: 2014Q2

REPORT INFORMATION
  Report Type: Report from Study
  Country: DE (occurrence: DE)
  Receive Date: 20140221
  Receipt Date: 20140520
  Transmission Date: 20141212
  Serious: Yes (Hospitalization)
  Sender: FDA-Public Use
  Company Number: DE-AMGEN-DEUCT2014012543

PATIENT
  Age: 83 Year
  Sex: Male

DRUGS (10)
  1. ETANERCEPT [Suspect]
     Indication: PRODUCT USED FOR UNKNOWN INDICATION
     Dosage: 50 MG, QWK
     Route: 065
  2. PREDNISONE [Concomitant]
     Dosage: UNK
  3. METOPROLOL [Concomitant]
     Dosage: UNK
  4. ENALAPRIL [Concomitant]
     Dosage: UNK
  5. PANTOZOL                           /01263204/ [Concomitant]
     Dosage: UNK
  6. L-THYROXIN [Concomitant]
     Dosage: UNK
  7. TRAMAL [Concomitant]
     Dosage: UNK
  8. VIGANTOLETTEN [Concomitant]
     Dosage: UNK
  9. SYMBICORT [Concomitant]
     Dosage: UNK
  10. KLACID                             /00984601/ [Concomitant]
     Dosage: UNK

REACTIONS (2)
  - Pleural effusion [Not Recovered/Not Resolved]
  - Bronchitis [Not Recovered/Not Resolved]
